FAERS Safety Report 8043321-6 (Version None)
Quarter: 2012Q1

REPORT INFORMATION
  Report Type: 
  Country: None (occurrence: None)
  Receive Date: 20120112
  Receipt Date: 20120103
  Transmission Date: 20120608
  Serious: Yes (Hospitalization)
  Sender: FDA-Public Use
  Company Number: FR-GLAXOSMITHKLINE-B0743129A

PATIENT
  Sex: Male
  Weight: 81 kg

DRUGS (9)
  1. ARIXTRA [Suspect]
     Indication: PRODUCT USED FOR UNKNOWN INDICATION
     Route: 058
     Dates: start: 20110718, end: 20110729
  2. BISOPROLOL FUMARATE [Suspect]
     Route: 048
     Dates: start: 20110718, end: 20110727
  3. OXYCONTIN [Concomitant]
  4. ASPIRIN [Concomitant]
  5. PANTOPRAZOLE [Suspect]
     Route: 048
     Dates: start: 20110614, end: 20110727
  6. PERMIXON [Suspect]
     Route: 048
     Dates: start: 20110723, end: 20110727
  7. PROSCAR [Suspect]
     Route: 048
     Dates: start: 20110723, end: 20110727
  8. ATORVASTATIN CALCIUM [Suspect]
     Route: 048
     Dates: start: 20110718, end: 20110727
  9. OXYCODONE HCL [Concomitant]

REACTIONS (2)
  - ERYTHEMA [None]
  - RASH MACULO-PAPULAR [None]
